FAERS Safety Report 25335252 (Version 2)
Quarter: 2025Q3

REPORT INFORMATION
  Report Type: Spontaneous
  Country: EU (occurrence: EU)
  Receive Date: 20250520
  Receipt Date: 20250803
  Transmission Date: 20251021
  Serious: Yes (Life-Threatening, Other)
  Sender: ALEXION PHARMACEUTICALS
  Company Number: EU-AstraZeneca-CH-00869419A

PATIENT
  Sex: Female

DRUGS (3)
  1. TRUQAP [Suspect]
     Active Substance: CAPIVASERTIB
     Indication: Breast cancer metastatic
  2. TRUQAP [Suspect]
     Active Substance: CAPIVASERTIB
     Dosage: 640 MILLIGRAM, QD
  3. FULVESTRANT [Concomitant]
     Active Substance: FULVESTRANT
     Route: 065

REACTIONS (3)
  - Malignant neoplasm progression [Unknown]
  - Diabetes mellitus [Unknown]
  - Hyperglycaemia [Recovered/Resolved]
